FAERS Safety Report 4945223-8 (Version None)
Quarter: 2006Q1

REPORT INFORMATION
  Report Type: 
  Country: None (occurrence: None)
  Receive Date: 20060117
  Receipt Date: 20051019
  Transmission Date: 20060701
  Serious: Yes (Life-Threatening, Hospitalization)
  Sender: FDA-Public Use
  Company Number: A03200503343

PATIENT
  Age: 83 Year
  Sex: Male

DRUGS (2)
  1. PLAVIX [Suspect]
     Indication: TRANSIENT ISCHAEMIC ATTACK
     Dosage: 1/2 TABLET DAILY - ORAL
     Route: 048
     Dates: start: 20040101, end: 20050726
  2. ASPIRIN [Suspect]
     Indication: TRANSIENT ISCHAEMIC ATTACK
     Dosage: 81 MG QD - ORAL
     Route: 048
     Dates: start: 20040101

REACTIONS (3)
  - ASTHENIA [None]
  - INTRACRANIAL HYPOTENSION [None]
  - SUBDURAL HAEMATOMA [None]
